FAERS Safety Report 11832986 (Version 1)
Quarter: 2015Q4

REPORT INFORMATION
  Report Type: Spontaneous
  Country: RU (occurrence: RU)
  Receive Date: 20151214
  Receipt Date: 20151214
  Transmission Date: 20160305
  Serious: Yes (Other)
  Sender: FDA-Public Use
  Company Number: RU-EISAI MEDICAL RESEARCH-EC-2015-012727

PATIENT
  Age: 26 Year
  Sex: Female

DRUGS (8)
  1. TEGRETOL CR [Concomitant]
     Active Substance: CARBAMAZEPINE
     Route: 065
     Dates: start: 20150611
  2. LEVETIRACETAM. [Concomitant]
     Active Substance: LEVETIRACETAM
     Route: 065
     Dates: start: 20151118
  3. TEGRETOL CR [Concomitant]
     Active Substance: CARBAMAZEPINE
     Indication: EPILEPSY
     Route: 065
  4. FYCOMPA [Suspect]
     Active Substance: PERAMPANEL
     Indication: EPILEPSY
     Route: 048
     Dates: start: 20150927, end: 201510
  5. LEVETIRACETAM. [Concomitant]
     Active Substance: LEVETIRACETAM
     Indication: EPILEPSY
     Route: 065
  6. LEVETIRACETAM. [Concomitant]
     Active Substance: LEVETIRACETAM
     Dosage: GRADUAL DOWN-TITRATION TO DISCONTINUATION
     Route: 065
     Dates: start: 201510, end: 2015
  7. LEVETIRACETAM. [Concomitant]
     Active Substance: LEVETIRACETAM
     Route: 065
     Dates: start: 20150611, end: 201510
  8. FYCOMPA [Suspect]
     Active Substance: PERAMPANEL
     Dosage: UP-TITRATION OF 1 MG/DAY PER WEEK
     Route: 048
     Dates: start: 201510, end: 20151118

REACTIONS (1)
  - Seizure [Recovered/Resolved]

NARRATIVE: CASE EVENT DATE: 201510
